FAERS Safety Report 9562791 (Version 1)
Quarter: 2013Q3

REPORT INFORMATION
  Report Type: Spontaneous
  Country: ES (occurrence: ES)
  Receive Date: 20130927
  Receipt Date: 20130927
  Transmission Date: 20140515
  Serious: Yes (Hospitalization)
  Sender: FDA-Public Use
  Company Number: ES-BRISTOL-MYERS SQUIBB COMPANY-19415009

PATIENT
  Age: 56 Year
  Sex: Male
  Weight: 58 kg

DRUGS (2)
  1. ERBITUX SOLN FOR INF 5MG/ML [Suspect]
     Indication: OROPHARYNGEAL CANCER
     Route: 042
     Dates: start: 201301, end: 20130711
  2. PACLITAXEL [Suspect]
     Indication: OROPHARYNGEAL CANCER
     Route: 042
     Dates: start: 201301, end: 20130711

REACTIONS (2)
  - Neuropathy peripheral [Recovering/Resolving]
  - Skin toxicity [Recovering/Resolving]
